FAERS Safety Report 26059268 (Version 1)
Quarter: 2025Q4

REPORT INFORMATION
  Report Type: Spontaneous
  Country: US (occurrence: None)
  Receive Date: 20251118
  Receipt Date: 20251118
  Transmission Date: 20260117
  Serious: Yes (Hospitalization)
  Sender: FDA-CTU
  Company Number: None

PATIENT
  Age: 77 Year
  Sex: Male

DRUGS (1)
  1. IBRUTINIB [Suspect]
     Active Substance: IBRUTINIB

REACTIONS (4)
  - Fall [None]
  - Pericardial effusion [None]
  - Pericardial haemorrhage [None]
  - Toxicity to various agents [None]

NARRATIVE: CASE EVENT DATE: 20251029
